FAERS Safety Report 24247275 (Version 1)
Quarter: 2024Q3

REPORT INFORMATION
  Report Type: Spontaneous
  Country: US (occurrence: US)
  Receive Date: 20240826
  Receipt Date: 20240826
  Transmission Date: 20241016
  Serious: No
  Sender: RECKITT BENCKISER
  Company Number: US-PROD-AS2-212756134-RB-105998-2023

PATIENT
  Age: 87 Year
  Sex: Female
  Weight: 67.27 kg

DRUGS (1)
  1. MUCINEX MAXIMUM STRENGTH [Suspect]
     Active Substance: GUAIFENESIN
     Indication: Nasopharyngitis
     Dosage: 1 DOSAGE FORM, BID
     Route: 048
     Dates: start: 20230901

REACTIONS (2)
  - Accidental overdose [Recovered/Resolved]
  - Drug effective for unapproved indication [Recovered/Resolved]

NARRATIVE: CASE EVENT DATE: 20230901
